FAERS Safety Report 10152195 (Version 1)
Quarter: 2014Q2

REPORT INFORMATION
  Report Type: Report from Study
  Country: VE (occurrence: VE)
  Receive Date: 20140505
  Receipt Date: 20140505
  Transmission Date: 20141212
  Serious: Yes (Death, Other)
  Sender: FDA-Public Use
  Company Number: PHHY2014VE053180

PATIENT
  Age: 71 Year
  Sex: Male

DRUGS (1)
  1. SANDOSTATIN LAR [Suspect]
     Indication: ENDOCRINE NEOPLASM
     Dosage: 30 MG, UNK
     Dates: start: 2009

REACTIONS (4)
  - Death [Fatal]
  - Metastasis [Unknown]
  - Large intestinal obstruction [Unknown]
  - Incorrect route of drug administration [Unknown]
